FAERS Safety Report 7068269-5 (Version None)
Quarter: 2010Q4

REPORT INFORMATION
  Report Type: 
  Country: None (occurrence: None)
  Receive Date: 20101027
  Receipt Date: 20101027
  Transmission Date: 20110411
  Serious: Yes (Other)
  Sender: FDA-Public Use
  Company Number: None

PATIENT
  Age: 32 Year
  Sex: Male
  Weight: 88.4514 kg

DRUGS (1)
  1. NOVEDEX XT GASPERI [Suspect]
     Indication: BLOOD TESTOSTERONE ABNORMAL
     Dosage: 3 PILLS TWICE DAILY PO
     Route: 048
     Dates: start: 20100601, end: 20100630

REACTIONS (1)
  - ERECTILE DYSFUNCTION [None]
